FAERS Safety Report 22292985 (Version 2)
Quarter: 2023Q2

REPORT INFORMATION
  Report Type: Spontaneous
  Country: US (occurrence: US)
  Receive Date: 20230508
  Receipt Date: 20230519
  Transmission Date: 20230721
  Serious: No
  Sender: FDA-Public Use
  Company Number: US-BIOGEN-2023BI01203741

PATIENT
  Sex: Female

DRUGS (8)
  1. TYSABRI [Suspect]
     Active Substance: NATALIZUMAB
     Indication: Relapsing-remitting multiple sclerosis
     Dosage: INFUSED OVER 1 HOUR
     Route: 050
     Dates: start: 20211110, end: 20220701
  2. TYSABRI [Suspect]
     Active Substance: NATALIZUMAB
     Route: 050
     Dates: start: 20230516
  3. EPINEPHRINE [Concomitant]
     Active Substance: EPINEPHRINE
     Indication: Anaphylactic reaction
     Dosage: 0.3MG/0.3ML INJECTION, AUTOINJECTOR?INJECT 0.3 ML BY IM ROUTE ONCE AS NEEDED
     Route: 050
  4. FLUTICASONE PROPIONATE [Concomitant]
     Active Substance: FLUTICASONE PROPIONATE
     Dosage: 2 SPRAYS INTO EACH NOSTRIL EVERYDAY
     Route: 050
  5. MEDROXYPROGESTERONE [Concomitant]
     Active Substance: MEDROXYPROGESTERONE
     Dosage: TAKE 1 TABLET DAILY FOR 10 DAYS AS DIRECTED BY PHYSICIAN
     Route: 050
  6. MONTELUKAST [Concomitant]
     Active Substance: MONTELUKAST SODIUM
     Indication: Cough
     Dosage: TAKE 1 TABLET BY MOUTH NIGHTLY AS NEEDED
     Route: 050
  7. TOPAMAX [Concomitant]
     Active Substance: TOPIRAMATE
     Dosage: TAKE 1 TABLET EVERYDAY BY ORAL ROUTE FOR 90 DAYS
     Route: 050
  8. XULANE [Concomitant]
     Active Substance: ETHINYL ESTRADIOL\NORELGESTROMIN
     Dosage: APPLY 1 PATCH TRANSDERMALLY WEEKLY FOR 3 WEEKS THEN 4TH WEEK PATCH FREE AND REPEAT
     Route: 050

REACTIONS (3)
  - Vein rupture [Not Recovered/Not Resolved]
  - Injection site reaction [Unknown]
  - Nausea [Unknown]
